FAERS Safety Report 10088246 (Version 2)
Quarter: 2014Q2

REPORT INFORMATION
  Report Type: Spontaneous
  Country: US (occurrence: US)
  Receive Date: 20140421
  Receipt Date: 20140501
  Transmission Date: 20141212
  Serious: No
  Sender: FDA-Public Use
  Company Number: US-009507513-1403USA009401

PATIENT
  Sex: Female

DRUGS (10)
  1. PEGINTRON [Suspect]
     Indication: HEPATITIS C
     Dosage: 0.5 ML, QW, REDIPEN
     Dates: start: 20140214
  2. REBETOL [Suspect]
     Indication: HEPATITIS C
     Dosage: 600MG/400MG, BID
     Route: 048
     Dates: start: 20140214
  3. SOVALDI [Concomitant]
     Dosage: 400 MG, DAILY
  4. ELAVIL [Concomitant]
     Dosage: 50 MG, QD
  5. HYDROCODONE [Concomitant]
     Dosage: DOSE 5MG/150MG, AS NEEDED
  6. XANAX [Concomitant]
     Dosage: 1 MG, TID
  7. VENTOLIN (ALBUTEROL) [Concomitant]
     Dosage: UNK
  8. BISOPROLOL FUMARATE (+) HYDROCHLOROTHIAZIDE [Concomitant]
     Dosage: UNK
  9. ADVAIR [Concomitant]
  10. ESCITALOPRAM [Concomitant]
     Dosage: DAILY

REACTIONS (9)
  - Hepatic pain [Unknown]
  - Gallbladder disorder [Unknown]
  - Musculoskeletal pain [Unknown]
  - Liver disorder [Unknown]
  - Memory impairment [Unknown]
  - Insomnia [Unknown]
  - Influenza like illness [Unknown]
  - Decreased appetite [Unknown]
  - Emphysema [Unknown]
